FAERS Safety Report 5884792-0 (Version None)
Quarter: 2008Q3

REPORT INFORMATION
  Report Type: 
  Country: None (occurrence: None)
  Receive Date: 20080916
  Receipt Date: 20080908
  Transmission Date: 20090109
  Serious: Yes (Death, Hospitalization)
  Sender: FDA-Public Use
  Company Number: US-AMGEN-QUU306495

PATIENT
  Sex: Male

DRUGS (2)
  1. ENBREL [Suspect]
     Indication: RHEUMATOID ARTHRITIS
     Route: 058
     Dates: start: 20070901
  2. METHOTREXATE [Concomitant]

REACTIONS (5)
  - CHEST PAIN [None]
  - DEATH [None]
  - MALAISE [None]
  - MYOCARDIAL INFARCTION [None]
  - THROMBOSIS [None]
